FAERS Safety Report 21774945 (Version 1)
Quarter: 2022Q4

REPORT INFORMATION
  Report Type: Spontaneous
  Country: US (occurrence: None)
  Receive Date: 20221225
  Receipt Date: 20221225
  Transmission Date: 20230112
  Serious: Yes (Hospitalization, Other)
  Sender: FDA-Public Use
  Company Number: US-Emmaus Medical, Inc.-EMM202211-000278

PATIENT
  Age: 45 Year
  Sex: Male

DRUGS (2)
  1. ENDARI [Suspect]
     Active Substance: GLUTAMINE
     Indication: Sickle cell disease
     Dosage: 15 G (THREE PACKETS)
     Route: 048
     Dates: start: 20221019
  2. ENDARI [Suspect]
     Active Substance: GLUTAMINE
     Dosage: 15 G (THREE PACKETS)
     Route: 048
     Dates: start: 202211

REACTIONS (3)
  - Pruritus [Unknown]
  - Burning sensation [Unknown]
  - Sickle cell anaemia with crisis [Unknown]

NARRATIVE: CASE EVENT DATE: 20221128
